FAERS Safety Report 11163830 (Version 3)
Quarter: 2015Q3

REPORT INFORMATION
  Report Type: Spontaneous
  Country: ES (occurrence: ES)
  Receive Date: 20150604
  Receipt Date: 20150709
  Transmission Date: 20151125
  Serious: Yes (Hospitalization, Other)
  Sender: FDA-Public Use
  Company Number: ES-AMGEN-ESPSP2015053221

PATIENT
  Age: 66 Year
  Sex: Female

DRUGS (6)
  1. SERC [Concomitant]
     Active Substance: BETAHISTINE HYDROCHLORIDE
     Dosage: UNK
  2. ENBREL [Suspect]
     Active Substance: ETANERCEPT
     Dosage: 50 MG, WEEKLY
     Route: 058
     Dates: start: 201506
  3. SERC [Concomitant]
     Active Substance: BETAHISTINE HYDROCHLORIDE
     Indication: DIZZINESS
     Dosage: UNK, DAILY
  4. ENBREL [Suspect]
     Active Substance: ETANERCEPT
     Indication: PSORIASIS
     Dosage: 50 MG, 2X/WEEK (ON MONDAYS AND THURSDAYS)
     Route: 058
     Dates: start: 20150210, end: 20150514
  5. SERC [Concomitant]
     Active Substance: BETAHISTINE HYDROCHLORIDE
     Dosage: ^1 IF DIZZINESS^
     Dates: start: 201502
  6. ENALAPRIL [Concomitant]
     Active Substance: ENALAPRIL
     Indication: HYPERTENSION
     Dosage: 20 MG, 2X/DAY

REACTIONS (4)
  - Malaise [Recovered/Resolved]
  - Cholelithiasis [Not Recovered/Not Resolved]
  - Urinary tract infection [Recovered/Resolved]
  - Cholecystitis infective [Recovered/Resolved]

NARRATIVE: CASE EVENT DATE: 20150514
